FAERS Safety Report 15311316 (Version 1)
Quarter: 2018Q3

REPORT INFORMATION
  Report Type: Spontaneous
  Country: FR (occurrence: FR)
  Receive Date: 20180823
  Receipt Date: 20180823
  Transmission Date: 20181010
  Serious: Yes (Hospitalization)
  Sender: FDA-Public Use
  Company Number: FR-PFIZER INC-2018337443

PATIENT
  Age: 54 Year
  Sex: Female

DRUGS (9)
  1. IRINOTECAN HCL [Suspect]
     Active Substance: IRINOTECAN HYDROCHLORIDE
     Indication: PANCREATIC CARCINOMA
     Dosage: 300 MG, 1X/DAY
     Route: 042
     Dates: start: 20180706, end: 20180706
  2. ONDANSETRON ACCORD [Concomitant]
     Active Substance: ONDANSETRON
     Dosage: 8 MG, 1X/DAY
     Route: 042
     Dates: start: 20180706, end: 20180706
  3. ATROPINE SULFATE AGUETTANT [Concomitant]
     Active Substance: ATROPINE SULFATE
     Dosage: 0.5 MG, 1X/DAY
     Route: 058
     Dates: start: 20180706, end: 20180706
  4. EMEND [Concomitant]
     Active Substance: APREPITANT
     Dosage: 125 MG, 1X/DAY
     Route: 048
     Dates: start: 20180706, end: 20180708
  5. OXALIPLATIN. [Suspect]
     Active Substance: OXALIPLATIN
     Indication: PANCREATIC CARCINOMA
     Dosage: 140 MG, 1X/DAY
     Route: 042
     Dates: start: 20180706, end: 20180706
  6. FLUOROURACILE ACCORD [Suspect]
     Active Substance: FLUOROURACIL
     Indication: PANCREATIC CARCINOMA
     Dosage: 4000 MG, 1X/DAY
     Route: 042
     Dates: start: 20180706, end: 20180706
  7. METHYLPREDNISOLONE MYLAN [METHYLPREDNISOLONE HEMISUCCINATE] [Concomitant]
     Dosage: 60 MG, 1X/DAY
     Dates: start: 20180706, end: 20180706
  8. CALCIUM FOLINATE ZENTIVA [Concomitant]
     Active Substance: LEUCOVORIN CALCIUM
     Dosage: 326 MG, 1X/DAY
     Route: 042
     Dates: start: 20180706, end: 20180706
  9. NEULASTA [Concomitant]
     Active Substance: PEGFILGRASTIM
     Dosage: 6 MG, 1X/DAY
     Route: 058
     Dates: start: 20180708, end: 20180708

REACTIONS (2)
  - Pancytopenia [Recovered/Resolved]
  - Diarrhoea [Recovered/Resolved]

NARRATIVE: CASE EVENT DATE: 20180717
